FAERS Safety Report 21191677 (Version 1)
Quarter: 2022Q3

REPORT INFORMATION
  Report Type: Spontaneous
  Country: US (occurrence: US)
  Receive Date: 20220809
  Receipt Date: 20220809
  Transmission Date: 20221026
  Serious: Yes (Other)
  Sender: FDA-Public Use
  Company Number: US-PHARMAAND-2022PHR00139

PATIENT
  Age: 66 Year
  Sex: Male
  Weight: 74.376 kg

DRUGS (4)
  1. PEGASYS [Suspect]
     Active Substance: PEGINTERFERON ALFA-2A
     Indication: Polycythaemia vera
     Dosage: 0.25 MG, 1X/WEEK
     Dates: start: 202201, end: 20220321
  2. PEGASYS [Suspect]
     Active Substance: PEGINTERFERON ALFA-2A
     Indication: Hereditary haemochromatosis
     Dosage: 0.5 MG, 1X/WEEK
     Dates: start: 20220328, end: 20220404
  3. PEGASYS [Suspect]
     Active Substance: PEGINTERFERON ALFA-2A
     Dosage: 0.25 MG, 1X/WEEK
     Dates: start: 20220411, end: 20220411
  4. HYDROXYUREA [Suspect]
     Active Substance: HYDROXYUREA

REACTIONS (14)
  - Weight decreased [Recovering/Resolving]
  - Stomatitis [Recovered/Resolved]
  - Oral pain [Recovered/Resolved]
  - Oral candidiasis [Unknown]
  - Fungal foot infection [Recovered/Resolved]
  - Oral fungal infection [Unknown]
  - Oropharyngeal pain [Unknown]
  - Feeling cold [Unknown]
  - Therapeutic response unexpected [Recovered/Resolved]
  - Hypersensitivity [Recovered/Resolved]
  - Insomnia [Unknown]
  - Fatigue [Unknown]
  - Nausea [Unknown]
  - Overgrowth fungal [Recovered/Resolved]

NARRATIVE: CASE EVENT DATE: 20220101
